FAERS Safety Report 24201712 (Version 1)
Quarter: 2024Q3

REPORT INFORMATION
  Report Type: Spontaneous
  Country: US (occurrence: US)
  Receive Date: 20240812
  Receipt Date: 20240812
  Transmission Date: 20241017
  Serious: Yes (Other)
  Sender: BRISTOL MYERS SQUIBB
  Company Number: US-BRISTOL-MYERS SQUIBB COMPANY-2024-124807

PATIENT
  Age: 61 Year
  Sex: Male

DRUGS (9)
  1. REVLIMID [Suspect]
     Active Substance: LENALIDOMIDE
     Indication: Plasma cell myeloma
     Dosage: FREQUENCY: TAKE 1 CAPSULE BY MOUTH EVERY OTHER DAY FOR 21 DAYS FOLLOWED BY 7 DAYS OFF
     Route: 048
     Dates: start: 20220917
  2. ALBUTEROL SULFATE [Concomitant]
     Active Substance: ALBUTEROL SULFATE
     Dosage: AER
  3. HALOBETASOL [Concomitant]
     Active Substance: HALOBETASOL
  4. LIDOCAINE [Concomitant]
     Active Substance: LIDOCAINE
     Dosage: VISC
  5. LORAZEPAM [Concomitant]
     Active Substance: LORAZEPAM
  6. METHYLPREDNISOLONE [Concomitant]
     Active Substance: METHYLPREDNISOLONE
  7. PROMETHAZINE [Concomitant]
     Active Substance: PROMETHAZINE HYDROCHLORIDE
     Dosage: DM
  8. ZARXIO [Concomitant]
     Active Substance: FILGRASTIM-SNDZ
     Dosage: 480/0.8
  9. ZARXIO [Concomitant]
     Active Substance: FILGRASTIM-SNDZ
     Dosage: 300/0.5

REACTIONS (3)
  - Off label use [Unknown]
  - Loss of therapeutic response [Unknown]
  - Neutropenia [Unknown]
